FAERS Safety Report 5274089-4 (Version None)
Quarter: 2007Q1

REPORT INFORMATION
  Report Type: 
  Country: None (occurrence: None)
  Receive Date: 20070323
  Receipt Date: 20070319
  Transmission Date: 20070707
  Serious: Yes (Hospitalization)
  Sender: FDA-Public Use
  Company Number: GBWYE305519SEP03

PATIENT
  Sex: Male
  Weight: 77.8 kg

DRUGS (12)
  1. SIROLIMUS [Suspect]
     Indication: IMMUNOSUPPRESSANT DRUG THERAPY
     Route: 048
     Dates: start: 20020829
  2. SIMVASTATIN [Concomitant]
     Dosage: UNKNOWN
     Dates: end: 20021115
  3. NIFEDIPINE [Concomitant]
     Dosage: UNKNOWN
     Dates: end: 20030110
  4. NIFEDIPINE [Concomitant]
     Dosage: UNKNOWN
     Dates: start: 20030124, end: 20030327
  5. DOXAZOSIN MESYLATE [Concomitant]
  6. BENDROFLUAZIDE [Concomitant]
     Dosage: UNKNOWN
     Dates: start: 20030703
  7. FRUSEMIDE [Concomitant]
     Dosage: UNKNOWN
     Dates: start: 20030508, end: 20030703
  8. LOSEC [Concomitant]
     Dosage: UNKNOWN
     Dates: start: 20030417
  9. MOMETASONE FUROATE [Concomitant]
     Dosage: UNKNOWN
     Dates: start: 20030417, end: 20030617
  10. ATORVASTATIN CALCIUM [Concomitant]
     Dosage: UNKNOWN
     Dates: start: 20021115
  11. ALFACALCIDOL [Concomitant]
  12. ACETYLSALICYLIC ACID SRT [Concomitant]

REACTIONS (5)
  - CONDITION AGGRAVATED [None]
  - GASTROOESOPHAGEAL REFLUX DISEASE [None]
  - NASAL CONGESTION [None]
  - POSTNASAL DRIP [None]
  - VOCAL CORD THICKENING [None]
